FAERS Safety Report 4677778-5 (Version None)
Quarter: 2005Q2

REPORT INFORMATION
  Report Type: 
  Country: None (occurrence: None)
  Receive Date: 20050531
  Receipt Date: 20050519
  Transmission Date: 20051028
  Serious: Yes (Hospitalization, Other)
  Sender: FDA-Public Use
  Company Number: ES-JNJFOC-20050403132

PATIENT
  Age: 70 Year
  Sex: Male

DRUGS (7)
  1. REMICADE [Suspect]
     Route: 042
  2. REMICADE [Suspect]
     Indication: CROHN'S DISEASE
     Route: 042
  3. AZATHIOPRINE [Concomitant]
  4. PREDNISONE TAB [Concomitant]
  5. OMEPRAZOLE [Concomitant]
  6. IRON [Concomitant]
     Route: 049
  7. CALCIUM GLUCONATE [Concomitant]

REACTIONS (4)
  - HAEMODYNAMIC INSTABILITY [None]
  - PLEURAL EFFUSION [None]
  - PNEUMONIA PNEUMOCOCCAL [None]
  - RESPIRATORY FAILURE [None]
